FAERS Safety Report 16369962 (Version 1)
Quarter: 2019Q2

REPORT INFORMATION
  Report Type: Spontaneous
  Country: GB (occurrence: GB)
  Receive Date: 20190530
  Receipt Date: 20190530
  Transmission Date: 20190711
  Serious: Yes (Other)
  Sender: FDA-Public Use
  Company Number: GB-ROCHE-2324801

PATIENT

DRUGS (2)
  1. RIBAVIRIN. [Suspect]
     Active Substance: RIBAVIRIN
     Indication: RESPIRATORY SYNCYTIAL VIRUS INFECTION
     Dosage: 15-20 MG/KG DIVIDED INTO THREE DAILY DOSES, ROUNDED TO THE NEAREST 200 MG
     Route: 048
  2. RIBAVIRIN. [Suspect]
     Active Substance: RIBAVIRIN
     Indication: OFF LABEL USE

REACTIONS (4)
  - Haemolysis [Unknown]
  - Intentional product use issue [Unknown]
  - Acute kidney injury [Recovered/Resolved]
  - Off label use [Unknown]
